FAERS Safety Report 20542506 (Version 1)
Quarter: 2022Q1

REPORT INFORMATION
  Report Type: Spontaneous
  Country: GB (occurrence: GB)
  Receive Date: 20220302
  Receipt Date: 20220302
  Transmission Date: 20220424
  Serious: Yes (Life-Threatening, Hospitalization, Other)
  Sender: FDA-Public Use
  Company Number: GB-MHRA-MED-202202221810371520-XA5IM

PATIENT
  Sex: Male

DRUGS (13)
  1. ARIPIPRAZOLE [Suspect]
     Active Substance: ARIPIPRAZOLE
     Indication: Schizophrenia
     Dosage: 10 MILLIGRAM, AM
     Route: 048
  2. ARIPIPRAZOLE [Suspect]
     Active Substance: ARIPIPRAZOLE
     Dosage: 2.5 MILLIGRAM, QD
     Route: 048
     Dates: start: 20210407
  3. ARIPIPRAZOLE [Suspect]
     Active Substance: ARIPIPRAZOLE
     Dosage: 5 MILLIGRAM, QD
     Route: 048
     Dates: start: 20210418
  4. SERTRALINE [Suspect]
     Active Substance: SERTRALINE HYDROCHLORIDE
     Indication: Depression
     Dosage: 100 MILLIGRAM, QD
     Route: 048
  5. SERTRALINE [Suspect]
     Active Substance: SERTRALINE HYDROCHLORIDE
     Dosage: 50 MILLIGRAM, QD
     Route: 048
  6. BUMETANIDE [Concomitant]
     Active Substance: BUMETANIDE
     Dosage: UNK
  7. CYCLIZINE [Concomitant]
     Active Substance: CYCLIZINE
     Dosage: UNK
  8. HUMULINE [Concomitant]
     Dosage: UNK
  9. LINAGLIPTIN [Concomitant]
     Active Substance: LINAGLIPTIN
     Dosage: UNK
  10. MIDAZOLAM [Concomitant]
     Active Substance: MIDAZOLAM
     Dosage: UNK
  11. OMEPRAZOLE [Concomitant]
     Active Substance: OMEPRAZOLE
     Dosage: UNK
  12. OXYCODONE [Concomitant]
     Active Substance: OXYCODONE
     Dosage: UNK
  13. PREDNISOLONE [Concomitant]
     Active Substance: PREDNISOLONE
     Dosage: UNK

REACTIONS (8)
  - Pulmonary oedema [Recovered/Resolved]
  - Eosinophilic pneumonia [Recovered/Resolved]
  - Pneumonitis [Unknown]
  - Condition aggravated [Unknown]
  - Pulmonary congestion [Unknown]
  - Confusional state [Unknown]
  - Extrapyramidal disorder [Unknown]
  - Catatonia [Unknown]

NARRATIVE: CASE EVENT DATE: 20210308
